FAERS Safety Report 15704460 (Version 1)
Quarter: 2018Q4

REPORT INFORMATION
  Report Type: Spontaneous
  Country: US (occurrence: US)
  Receive Date: 20181210
  Receipt Date: 20181210
  Transmission Date: 20190205
  Serious: Yes (Other)
  Sender: FDA-Public Use
  Company Number: US-SUNOVION-2018SUN004696

PATIENT
  Age: 24 Year
  Sex: Female

DRUGS (7)
  1. APTIOM [Suspect]
     Active Substance: ESLICARBAZEPINE ACETATE
     Indication: PARTIAL SEIZURES
     Dosage: UNKNOWN
     Route: 048
  2. APTIOM [Suspect]
     Active Substance: ESLICARBAZEPINE ACETATE
     Dosage: UNKNOWN (TAPER OFF)
     Route: 048
  3. PERAMPANEL [Concomitant]
     Active Substance: PERAMPANEL
     Dosage: 2 MG, QD
     Route: 065
  4. PERAMPANEL [Concomitant]
     Active Substance: PERAMPANEL
     Dosage: UNK (TITRATING)
     Route: 065
  5. APTIOM [Suspect]
     Active Substance: ESLICARBAZEPINE ACETATE
     Dosage: UNKNOWN
     Route: 048
  6. ZONISAMIDE. [Concomitant]
     Active Substance: ZONISAMIDE
     Indication: PARTIAL SEIZURES
     Dosage: UNKNOWN
     Route: 065
  7. PERAMPANEL [Concomitant]
     Active Substance: PERAMPANEL
     Dosage: 8 MG, QD
     Route: 065

REACTIONS (4)
  - Irritability [Recovered/Resolved]
  - Seizure [Not Recovered/Not Resolved]
  - Mood altered [Recovered/Resolved]
  - Acne [Unknown]
